FAERS Safety Report 13527102 (Version 1)
Quarter: 2017Q2

REPORT INFORMATION
  Report Type: Spontaneous
  Country: IN (occurrence: IN)
  Receive Date: 20170509
  Receipt Date: 20170509
  Transmission Date: 20170830
  Serious: Yes (Life-Threatening, Other)
  Sender: FDA-Public Use
  Company Number: IN-ALVOGEN-2017-ALVOGEN-092133

PATIENT
  Age: 86 Year
  Sex: Male

DRUGS (3)
  1. FENTANYL. [Suspect]
     Active Substance: FENTANYL
     Indication: ANALGESIC THERAPY
     Route: 042
  2. LIDOCAINE. [Concomitant]
     Active Substance: LIDOCAINE
     Indication: LOCAL ANAESTHESIA
     Dosage: ADDITIONAL INFILTRATION OF INJ. LIGNOCAINE TO A MAXIMUM PERMITTED DOSE OF 3MG/KG
  3. LIDOCAINE. [Concomitant]
     Active Substance: LIDOCAINE
     Indication: LOCAL ANAESTHESIA
     Dosage: ADDITIONAL INFILTRATION OF INJ. LIGNOCAINE TO A MAXIMUM.

REACTIONS (4)
  - Airway complication of anaesthesia [Recovered/Resolved]
  - Sedation [Recovered/Resolved]
  - Acute pulmonary oedema [Recovered/Resolved]
  - Somnolence [Recovered/Resolved]
